FAERS Safety Report 14143637 (Version 1)
Quarter: 2017Q4

REPORT INFORMATION
  Report Type: Spontaneous
  Country: US (occurrence: US)
  Receive Date: 20171031
  Receipt Date: 20171031
  Transmission Date: 20180321
  Serious: Yes (Hospitalization)
  Sender: FDA-Public Use
  Company Number: US-UNICHEM LABORATORIES LIMITED-UCM201710-000251

PATIENT
  Age: 16 Year
  Sex: Female

DRUGS (3)
  1. NEFAZODONE [Concomitant]
     Active Substance: NEFAZODONE
  2. DIVALPROEX SODIUM. [Suspect]
     Active Substance: DIVALPROEX SODIUM
     Dosage: 20 PILLS 250 MG
  3. OLANZAPINE. [Concomitant]
     Active Substance: OLANZAPINE

REACTIONS (4)
  - Drug level increased [Unknown]
  - Intentional overdose [Recovered/Resolved]
  - Electrocardiogram ST segment depression [Recovered/Resolved]
  - Electrocardiogram T wave inversion [Recovered/Resolved]
